FAERS Safety Report 25271528 (Version 2)
Quarter: 2025Q4

REPORT INFORMATION
  Report Type: Report from Study
  Country: TR (occurrence: TR)
  Receive Date: 20250506
  Receipt Date: 20251128
  Transmission Date: 20260118
  Serious: Yes (Congenital Anomaly, Other)
  Sender: RANBAXY
  Company Number: TR-SUN PHARMACEUTICAL INDUSTRIES LTD-2025R1-505943

PATIENT
  Weight: 3.25 kg

DRUGS (1)
  1. CARBAMAZEPINE [Suspect]
     Active Substance: CARBAMAZEPINE
     Indication: Epilepsy
     Dosage: 400 MILLIGRAM, DAILY
     Route: 065

REACTIONS (2)
  - Foetal exposure during pregnancy [Unknown]
  - Congenital hydronephrosis [Unknown]
